FAERS Safety Report 13833472 (Version 3)
Quarter: 2017Q3

REPORT INFORMATION
  Report Type: Spontaneous
  Country: US (occurrence: US)
  Receive Date: 20170803
  Receipt Date: 20170807
  Transmission Date: 20171127
  Serious: Yes (Other)
  Sender: FDA-Public Use
  Company Number: US-SUNOVION-2017SUN003361

PATIENT
  Sex: Female

DRUGS (2)
  1. LATUDA [Suspect]
     Active Substance: LURASIDONE HYDROCHLORIDE
     Route: 048
  2. PROZAC [Concomitant]
     Active Substance: FLUOXETINE HYDROCHLORIDE
     Dosage: 40 MG, UNK

REACTIONS (9)
  - Self-injurious ideation [Unknown]
  - Obsessive thoughts [Unknown]
  - Initial insomnia [Unknown]
  - Tachyphrenia [Unknown]
  - Crying [Unknown]
  - Depression [Unknown]
  - Asocial behaviour [Unknown]
  - Hypersomnia [Unknown]
  - Drug withdrawal syndrome [Unknown]
